FAERS Safety Report 11230676 (Version 1)
Quarter: 2015Q3

REPORT INFORMATION
  Report Type: Spontaneous
  Country: GB (occurrence: GB)
  Receive Date: 20150701
  Receipt Date: 20150701
  Transmission Date: 20151125
  Serious: Yes (Hospitalization)
  Sender: FDA-Public Use
  Company Number: GB-TEVA-573668ACC

PATIENT
  Age: 62 Year
  Sex: Male

DRUGS (1)
  1. ESOMEPRAZOLE [Suspect]
     Active Substance: ESOMEPRAZOLE
     Indication: DYSPEPSIA
     Route: 048
     Dates: end: 20150601

REACTIONS (3)
  - Vomiting [Recovered/Resolved]
  - Abnormal loss of weight [Recovering/Resolving]
  - Nausea [Recovered/Resolved]
